FAERS Safety Report 5473860-3 (Version None)
Quarter: 2007Q4

REPORT INFORMATION
  Report Type: 
  Country: None (occurrence: None)
  Receive Date: 20071001
  Receipt Date: 20070927
  Transmission Date: 20080405
  Serious: Yes (Hospitalization)
  Sender: FDA-Public Use
  Company Number: US-BAXTER-2007BH007984

PATIENT
  Sex: Female

DRUGS (1)
  1. ELECTROLYTES NOS AND AMINO ACIDS NOS [Suspect]
     Indication: HYPONATRAEMIA
     Dosage: DOSE UNIT:UNKNOWN
     Route: 042
     Dates: start: 20070713, end: 20070717

REACTIONS (1)
  - FUNGAL INFECTION [None]
